FAERS Safety Report 10085646 (Version 1)
Quarter: 2014Q2

REPORT INFORMATION
  Report Type: Report from Study
  Country: US (occurrence: US)
  Receive Date: 20140418
  Receipt Date: 20140418
  Transmission Date: 20141212
  Serious: Yes (Hospitalization, Other)
  Sender: FDA-Public Use
  Company Number: US-JNJFOC-20140408724

PATIENT
  Age: 59 Year
  Sex: Female
  Weight: 70.31 kg

DRUGS (6)
  1. REMICADE [Suspect]
     Indication: RHEUMATOID ARTHRITIS
     Dosage: STARTED IN 2005 OR 2006
     Route: 042
  2. STEROIDS NOS [Suspect]
     Indication: PRODUCT USED FOR UNKNOWN INDICATION
     Route: 065
  3. TRAMADOL [Concomitant]
     Indication: PAIN
     Route: 048
  4. TOPAMAX [Concomitant]
     Indication: HEADACHE
     Route: 048
  5. ZOLOFT [Concomitant]
     Route: 048
  6. FLEXERIL [Concomitant]
     Route: 048

REACTIONS (5)
  - Osteonecrosis [Not Recovered/Not Resolved]
  - Appendicitis perforated [Recovered/Resolved]
  - Bladder cyst [Recovered/Resolved]
  - Adverse event [Unknown]
  - Joint swelling [Not Recovered/Not Resolved]
